FAERS Safety Report 15165359 (Version 4)
Quarter: 2023Q4

REPORT INFORMATION
  Report Type: Spontaneous
  Country: US (occurrence: US)
  Receive Date: 20180719
  Receipt Date: 20231220
  Transmission Date: 20240109
  Serious: Yes (Life-Threatening, Hospitalization, Other)
  Sender: FDA-Public Use
  Company Number: US-AUROBINDO-AUR-APL-2018-034896

PATIENT
  Age: 24 Year
  Sex: Male

DRUGS (8)
  1. FLUOXETINE [Interacting]
     Active Substance: FLUOXETINE HYDROCHLORIDE
     Indication: Depression
     Dosage: UNK
     Route: 048
  2. OLANZAPINE [Interacting]
     Active Substance: OLANZAPINE
     Indication: Schizoaffective disorder
     Dosage: UNK (TOTAL 60 UNITS (5MG AND 10MG))
     Route: 048
  3. OLANZAPINE [Interacting]
     Active Substance: OLANZAPINE
     Indication: Schizoaffective disorder
     Dosage: UNK (TOTAL 60 UNITS (5MG AND 10MG))
     Route: 048
  4. TRAZODONE [Suspect]
     Active Substance: TRAZODONE HYDROCHLORIDE
     Indication: Product used for unknown indication
     Dosage: 30 UNITS
     Route: 048
  5. BUPROPION HYDROCHLORIDE [Suspect]
     Active Substance: BUPROPION HYDROCHLORIDE
     Indication: Product used for unknown indication
     Dosage: SUSTAINED RELEASE
     Route: 048
  6. BUPROPION HYDROCHLORIDE [Suspect]
     Active Substance: BUPROPION HYDROCHLORIDE
     Indication: Product used for unknown indication
     Dosage: SUSTAINED RELEASE
     Route: 048
  7. CYPROHEPTADINE [Interacting]
     Active Substance: CYPROHEPTADINE
     Indication: Insomnia
     Dosage: 60 UNITS
     Route: 048
  8. RISPERIDONE [Suspect]
     Active Substance: RISPERIDONE
     Indication: Schizoaffective disorder
     Dosage: 120 UNITS
     Route: 048

REACTIONS (13)
  - Intentional overdose [Recovered/Resolved]
  - Serotonin syndrome [Recovered/Resolved]
  - Acute kidney injury [Recovered/Resolved]
  - Rhabdomyolysis [Recovered/Resolved]
  - Miosis [Recovered/Resolved]
  - Electrocardiogram QT prolonged [Unknown]
  - Pneumonia aspiration [Recovered/Resolved]
  - Pupil fixed [Recovered/Resolved]
  - Hypotension [Recovered/Resolved]
  - Liver function test abnormal [Recovered/Resolved]
  - Symptom masked [Recovered/Resolved]
  - Drug interaction [Unknown]
  - Urine amphetamine positive [Unknown]
